FAERS Safety Report 15211223 (Version 1)
Quarter: 2018Q3

REPORT INFORMATION
  Report Type: Spontaneous
  Country: US (occurrence: US)
  Receive Date: 20180701
  Receipt Date: 20180701
  Transmission Date: 20181010
  Serious: Yes (Life-Threatening, Hospitalization, Disabling, Other)
  Sender: FDA-Public Use
  Company Number: None

PATIENT
  Age: 60 Year
  Sex: Male
  Weight: 121.5 kg

DRUGS (1)
  1. HUMIRA [Suspect]
     Active Substance: ADALIMUMAB
     Indication: HIDRADENITIS
     Dosage: ?          OTHER STRENGTH:1 INJ;QUANTITY:1 INJECTION(S);OTHER FREQUENCY:2 INJ TO START;?
     Route: 058
     Dates: start: 20170517, end: 20170628

REACTIONS (2)
  - B-cell lymphoma [None]
  - Burkitt^s lymphoma [None]

NARRATIVE: CASE EVENT DATE: 20170721
